FAERS Safety Report 5305938-9 (Version None)
Quarter: 2007Q2

REPORT INFORMATION
  Report Type: 
  Country: None (occurrence: None)
  Receive Date: 20070420
  Receipt Date: 20070420
  Transmission Date: 20071010
  Serious: Yes (Hospitalization)
  Sender: FDA-Public Use
  Company Number: None

PATIENT
  Sex: Female
  Weight: 63 kg

DRUGS (2)
  1. FLUDARABINE PHOSPHATE [Suspect]
     Dosage: 160 MG
     Dates: end: 20070330
  2. RITUXIMAB (MOAB C2B8 ANTI CD20, CHIMERIC) [Suspect]
     Dosage: 645 MG

REACTIONS (4)
  - CHILLS [None]
  - CONTRAINDICATION TO MEDICAL TREATMENT [None]
  - NEUTROPHIL COUNT DECREASED [None]
  - PYREXIA [None]
